FAERS Safety Report 10228960 (Version 2)
Quarter: 2014Q2

REPORT INFORMATION
  Report Type: Report from Study
  Country: ES (occurrence: ES)
  Receive Date: 20140610
  Receipt Date: 20140620
  Transmission Date: 20141212
  Serious: Yes (Other)
  Sender: FDA-Public Use
  Company Number: ES-GLAXOSMITHKLINE-B0884161A

PATIENT
  Age: 40 Year
  Sex: Female
  Weight: 69 kg

DRUGS (5)
  1. DABRAFENIB [Suspect]
     Indication: METASTATIC MALIGNANT MELANOMA
     Dosage: 150MG TWICE PER DAY
     Route: 048
     Dates: start: 20130227
  2. DEPRAX [Concomitant]
     Indication: DEPRESSION
     Route: 048
     Dates: start: 20130205
  3. LORMETAZEPAM [Concomitant]
     Indication: DEPRESSION
     Route: 048
     Dates: start: 20130205
  4. LORAZEPAM [Concomitant]
     Indication: DEPRESSION
     Route: 048
     Dates: start: 20130205
  5. IBUPROFEN [Concomitant]
     Indication: HYPERKERATOSIS
     Route: 048
     Dates: start: 20130205

REACTIONS (17)
  - Panniculitis [Recovered/Resolved]
  - Panniculitis [Recovered/Resolved]
  - Inflammation [Recovered/Resolved]
  - Blood phosphorus decreased [Recovered/Resolved]
  - Palmar-plantar erythrodysaesthesia syndrome [Recovered/Resolved]
  - Nausea [Recovered/Resolved]
  - Metrorrhagia [Recovered/Resolved]
  - Palmoplantar keratoderma [Not Recovered/Not Resolved]
  - Asthenia [Not Recovered/Not Resolved]
  - Alopecia [Recovering/Resolving]
  - Pyrexia [Recovered/Resolved]
  - Dysgeusia [Recovered/Resolved]
  - Pyrexia [Recovered/Resolved]
  - Arthralgia [Recovered/Resolved]
  - Dermatitis [Recovering/Resolving]
  - Headache [Recovered/Resolved]
  - Pyrexia [Recovered/Resolved]
